FAERS Safety Report 9937610 (Version 1)
Quarter: 2014Q1

REPORT INFORMATION
  Report Type: Spontaneous
  Country: GB (occurrence: GB)
  Receive Date: 20140303
  Receipt Date: 20140303
  Transmission Date: 20141002
  Serious: Yes (Life-Threatening, Hospitalization, Disabling)
  Sender: FDA-Public Use
  Company Number: GB-009507513-1402GBR010831

PATIENT
  Sex: Male

DRUGS (3)
  1. VICTRELIS [Suspect]
     Indication: HEPATITIS C
     Dosage: UNK UNK
     Route: 048
     Dates: start: 201309, end: 201312
  2. RIBAVIRIN [Suspect]
     Route: 048
  3. VIRAFERONPEG [Suspect]
     Dosage: 1.5 MICROGRAM PER KILOGRAM, UNK
     Route: 058

REACTIONS (1)
  - Hepatic cirrhosis [Not Recovered/Not Resolved]
